FAERS Safety Report 16867654 (Version 5)
Quarter: 2025Q4

REPORT INFORMATION
  Report Type: Spontaneous
  Country: JP (occurrence: JP)
  Receive Date: 20190930
  Receipt Date: 20251104
  Transmission Date: 20260119
  Serious: Yes (Life-Threatening, Hospitalization, Other)
  Sender: PFIZER
  Company Number: JP-MLMSERVICE-20190911-1947056-1

PATIENT
  Age: 74 Year
  Sex: Male

DRUGS (11)
  1. CEFOPERAZONE SODIUM\SULBACTAM SODIUM [Suspect]
     Active Substance: CEFOPERAZONE SODIUM\SULBACTAM SODIUM
     Indication: Cholecystitis acute
     Dosage: UNK
     Dates: start: 201708
  2. CEFOPERAZONE SODIUM\SULBACTAM SODIUM [Suspect]
     Active Substance: CEFOPERAZONE SODIUM\SULBACTAM SODIUM
     Indication: Antibiotic therapy
  3. METHYLPREDNISOLONE SODIUM SUCCINATE [Suspect]
     Active Substance: METHYLPREDNISOLONE SODIUM SUCCINATE
     Indication: Pulmonary toxicity
     Dosage: PULSE THERAPY (500 MG/DAY X 3 DAYS)
     Dates: start: 2017, end: 2017
  4. CYCLOSPORINE [Suspect]
     Active Substance: CYCLOSPORINE
     Indication: Paroxysmal nocturnal haemoglobinuria
     Dosage: 200 MG/DAY
     Dates: start: 2002
  5. CYCLOSPORINE [Suspect]
     Active Substance: CYCLOSPORINE
     Indication: Aplastic anaemia
  6. PREDNISOLONE [Suspect]
     Active Substance: PREDNISOLONE
     Indication: Haemophagocytic lymphohistiocytosis
     Dosage: 80 MG/DAY (1 MG/KG/DAY)
     Dates: start: 201708
  7. PREDNISOLONE [Suspect]
     Active Substance: PREDNISOLONE
     Indication: Haemolysis
     Dosage: GRADUALLY REDUCED AND WAS ADMINISTERED OVER 1 MONTH
     Dates: start: 2017
  8. PREDNISOLONE [Suspect]
     Active Substance: PREDNISOLONE
     Indication: Steroid therapy
     Dosage: GRADUALLY REDUCED AND WAS ADMINISTERED OVER 1 MONTH
     Dates: start: 2017
  9. PREDNISOLONE [Suspect]
     Active Substance: PREDNISOLONE
     Dosage: GRADUALLY REDUCED AND WAS ADMINISTERED OVER 1 MONTH
     Dates: start: 2017, end: 2017
  10. AMPHOTERICIN B [Concomitant]
     Active Substance: AMPHOTERICIN B
     Indication: Bronchopulmonary aspergillosis
     Dosage: UNK
     Dates: start: 2017
  11. VORICONAZOLE [Concomitant]
     Active Substance: VORICONAZOLE
     Indication: Bronchopulmonary aspergillosis
     Dosage: UNK

REACTIONS (3)
  - Fungal peritonitis [Not Recovered/Not Resolved]
  - Off label use [Unknown]
  - Drug effective for unapproved indication [Unknown]

NARRATIVE: CASE EVENT DATE: 20170101
